FAERS Safety Report 8450679-2 (Version None)
Quarter: 2012Q2

REPORT INFORMATION
  Report Type: 
  Country: None (occurrence: None)
  Receive Date: 20120620
  Receipt Date: 20120611
  Transmission Date: 20120825
  Serious: Yes (Hospitalization)
  Sender: FDA-Public Use
  Company Number: US-BAYER-2012-026774

PATIENT
  Age: 41 Year
  Sex: Female

DRUGS (9)
  1. SIMVASTATIN [Concomitant]
     Dosage: 20 MG, UNK
     Dates: start: 20080218
  2. AZITHROMYCIN [Concomitant]
     Indication: BRONCHITIS
     Route: 048
  3. YAZ [Suspect]
  4. YASMIN [Suspect]
  5. PREDNISONE TAB [Concomitant]
     Dosage: 10 MG, UNK
     Route: 048
     Dates: start: 20080122, end: 20080219
  6. BENZONATATE [Concomitant]
     Dosage: 200 MG, UNK
     Route: 048
     Dates: start: 20080331
  7. TYLENOL W/ CODEINE [Concomitant]
     Route: 048
  8. HYDROCODONE BITARTRATE AND ACETAMINOPHEN [Concomitant]
     Dosage: 5 MG/500 MG
     Route: 048
     Dates: start: 20080219
  9. HYDROCODONE BITARTRATE AND ACETAMINOPHEN [Concomitant]
     Dosage: 5 MG/500 MG
     Dates: start: 20080402

REACTIONS (2)
  - DEEP VEIN THROMBOSIS [None]
  - PULMONARY EMBOLISM [None]
